FAERS Safety Report 16116345 (Version 2)
Quarter: 2019Q2

REPORT INFORMATION
  Report Type: Spontaneous
  Country: US (occurrence: US)
  Receive Date: 20190326
  Receipt Date: 20190426
  Transmission Date: 20190711
  Serious: No
  Sender: FDA-Public Use
  Company Number: US-ASTRAZENECA-2019SE33376

PATIENT
  Age: 582 Month
  Sex: Female

DRUGS (3)
  1. BYDUREON [Suspect]
     Active Substance: EXENATIDE
     Indication: GLUCOSE TOLERANCE IMPAIRED
     Dosage: BYDUREON PEN 2 MG ONCE A WEEK
     Route: 058
     Dates: start: 20190204
  2. BYDUREON BCISE [Suspect]
     Active Substance: EXENATIDE
     Indication: GLUCOSE TOLERANCE IMPAIRED
     Route: 058
     Dates: start: 20190204
  3. BYDUREON [Suspect]
     Active Substance: EXENATIDE
     Indication: GLUCOSE TOLERANCE IMPAIRED
     Dosage: BYDUREON SDT 2 MG ONCE A WEEK
     Route: 058
     Dates: start: 201711

REACTIONS (7)
  - Device leakage [Unknown]
  - Nausea [Recovered/Resolved]
  - Off label use [Unknown]
  - Ill-defined disorder [Recovered/Resolved]
  - Product dose omission [Recovered/Resolved]
  - Nervousness [Recovered/Resolved]
  - Product use in unapproved indication [Unknown]

NARRATIVE: CASE EVENT DATE: 201711
